FAERS Safety Report 26022588 (Version 1)
Quarter: 2025Q4

REPORT INFORMATION
  Report Type: Spontaneous
  Country: IN (occurrence: IN)
  Receive Date: 20251110
  Receipt Date: 20251110
  Transmission Date: 20260117
  Serious: Yes (Death, Hospitalization, Other)
  Sender: DAITO PHARMACEUTICALS
  Company Number: IN-Daito Pharmaceutical Co., Ltd.-2188229

PATIENT
  Age: 51 Year
  Sex: Male

DRUGS (7)
  1. METHOTREXATE SODIUM [Suspect]
     Active Substance: METHOTREXATE SODIUM
     Indication: Rheumatoid arthritis
  2. HYDROXYCHLOROQUINE [Suspect]
     Active Substance: HYDROXYCHLOROQUINE
  3. LOPERAMIDE [Concomitant]
     Active Substance: LOPERAMIDE
  4. AZITHROMYCIN [Concomitant]
     Active Substance: AZITHROMYCIN
  5. LEFLUNOMIDE [Suspect]
     Active Substance: LEFLUNOMIDE
  6. SULFASALAZINE [Suspect]
     Active Substance: SULFASALAZINE
  7. PREDNISOLONE [Suspect]
     Active Substance: PREDNISOLONE

REACTIONS (4)
  - Drug reaction with eosinophilia and systemic symptoms [Fatal]
  - Toxic epidermal necrolysis [Fatal]
  - Neutropenic sepsis [Fatal]
  - Multiple organ dysfunction syndrome [Fatal]
